FAERS Safety Report 17260271 (Version 3)
Quarter: 2020Q1

REPORT INFORMATION
  Report Type: Other
  Country: CA (occurrence: CA)
  Receive Date: 20200112
  Receipt Date: 20200205
  Transmission Date: 20200409
  Serious: Yes (Life-Threatening, Other)
  Sender: FDA-Public Use
  Company Number: CA-APOTEX-2020AP005032

PATIENT
  Age: 44 Year
  Sex: Female

DRUGS (18)
  1. CLINDAMYCIN. [Suspect]
     Active Substance: CLINDAMYCIN
     Indication: HIDRADENITIS
     Dosage: UNK
     Route: 065
  2. CLINDAMYCIN. [Suspect]
     Active Substance: CLINDAMYCIN
     Indication: HIDRADENITIS
     Dosage: UNK
     Route: 061
  3. INVANZ [Suspect]
     Active Substance: ERTAPENEM SODIUM
     Indication: HIDRADENITIS
     Dosage: UNK
     Route: 042
  4. DAPSONE. [Suspect]
     Active Substance: DAPSONE
     Dosage: UNK
     Route: 061
  5. METRONIDAZOLE. [Suspect]
     Active Substance: METRONIDAZOLE
     Indication: HIDRADENITIS
     Dosage: UNK
     Route: 061
  6. ZINC. [Suspect]
     Active Substance: ZINC
     Indication: HIDRADENITIS
     Route: 065
  7. TETRACYCLINE [Suspect]
     Active Substance: TETRACYCLINE
     Indication: HIDRADENITIS
     Dosage: UNK
     Route: 065
  8. TRIAMCINOLONE [Suspect]
     Active Substance: TRIAMCINOLONE
     Indication: HIDRADENITIS
     Dosage: UNK
     Route: 026
  9. ERTAPENEM. [Suspect]
     Active Substance: ERTAPENEM SODIUM
     Indication: HIDRADENITIS
     Dosage: UNK
     Route: 026
  10. MOXIFLOXACIN. [Suspect]
     Active Substance: MOXIFLOXACIN
     Indication: HIDRADENITIS
     Dosage: UNK
     Route: 065
  11. DOXYCYCLINE. [Suspect]
     Active Substance: DOXYCYCLINE
     Indication: HIDRADENITIS
     Dosage: UNK
     Route: 065
  12. PREDNISONE. [Suspect]
     Active Substance: PREDNISONE
     Indication: HIDRADENITIS
     Dosage: UNK
     Route: 065
  13. METRONIDAZOLE. [Suspect]
     Active Substance: METRONIDAZOLE
     Indication: HIDRADENITIS
     Dosage: UNK
     Route: 065
  14. AMOXICILLIN AND CLAVULANATE POTASSIUM [Suspect]
     Active Substance: AMOXICILLIN\CLAVULANATE POTASSIUM
     Indication: HIDRADENITIS
     Dosage: UNK
     Route: 065
  15. MINOCYCLINE [Suspect]
     Active Substance: MINOCYCLINE HYDROCHLORIDE
     Indication: HIDRADENITIS
     Dosage: UNK
     Route: 065
  16. ISOTRETINOIN. [Suspect]
     Active Substance: ISOTRETINOIN
     Indication: HIDRADENITIS
     Dosage: UNK
     Route: 065
  17. DAPSONE. [Suspect]
     Active Substance: DAPSONE
     Indication: HIDRADENITIS
     Dosage: UNK
     Route: 065
  18. RIFAMPICIN [Suspect]
     Active Substance: RIFAMPIN
     Indication: HIDRADENITIS
     Dosage: UNK
     Route: 065

REACTIONS (12)
  - Scar [Unknown]
  - Mobility decreased [Unknown]
  - Drug ineffective [Unknown]
  - Skin lesion [Unknown]
  - Wound secretion [Unknown]
  - Skin odour abnormal [Unknown]
  - Treatment failure [Unknown]
  - Drug intolerance [Unknown]
  - Pain [Unknown]
  - Condition aggravated [Unknown]
  - Suicidal ideation [Unknown]
  - Hidradenitis [Unknown]
